FAERS Safety Report 15526567 (Version 1)
Quarter: 2018Q4

REPORT INFORMATION
  Report Type: Spontaneous
  Country: JP (occurrence: JP)
  Receive Date: 20181018
  Receipt Date: 20181018
  Transmission Date: 20190205
  Serious: Yes (Other)
  Sender: FDA-Public Use
  Company Number: JP-DSJP-DSJ-2018-143593

PATIENT

DRUGS (3)
  1. OLMETEC OD [Suspect]
     Active Substance: OLMESARTAN MEDOXOMIL
     Indication: PRODUCT USED FOR UNKNOWN INDICATION
     Dosage: UNK
     Route: 048
  2. POTASSIUM ADSORBENT [Concomitant]
     Dosage: UNK
     Route: 065
  3. POTASSIUM ADSORBENT [Concomitant]
     Dosage: UNK
     Route: 065

REACTIONS (2)
  - Blood potassium increased [Not Recovered/Not Resolved]
  - Hypoaesthesia [Not Recovered/Not Resolved]
